FAERS Safety Report 5176408-6 (Version None)
Quarter: 2006Q4

REPORT INFORMATION
  Report Type: 
  Country: None (occurrence: None)
  Receive Date: 20061215
  Receipt Date: 20061211
  Transmission Date: 20070319
  Serious: Yes (Other)
  Sender: FDA-Public Use
  Company Number: GB-MERCK-0612GBR00053

PATIENT
  Age: 2 Year
  Sex: Female

DRUGS (4)
  1. SINGULAIR [Suspect]
     Route: 048
     Dates: start: 20061115, end: 20061122
  2. BECOTIDE [Concomitant]
     Dates: start: 20051201
  3. CETRIZIN (CETIRIZINE HYDROCHLORIDE) [Concomitant]
     Route: 048
     Dates: start: 20060501
  4. ALBUTEROL [Concomitant]
     Dates: start: 20051201

REACTIONS (4)
  - DISTURBANCE IN ATTENTION [None]
  - PRURITUS [None]
  - PSYCHOMOTOR HYPERACTIVITY [None]
  - SLEEP DISORDER [None]
